FAERS Safety Report 7550459-6 (Version None)
Quarter: 2011Q2

REPORT INFORMATION
  Report Type: 
  Country: None (occurrence: None)
  Receive Date: 20110615
  Receipt Date: 20110524
  Transmission Date: 20111010
  Serious: No
  Sender: FDA-Public Use
  Company Number: US-BAUSCH-2011BL003460

PATIENT
  Age: 63 Year
  Sex: Female

DRUGS (5)
  1. LOTEMAX [Concomitant]
     Indication: CONJUNCTIVITIS
     Route: 047
     Dates: start: 20110515
  2. BESIVANCE [Suspect]
     Indication: CONJUNCTIVITIS
     Route: 047
     Dates: start: 20110515, end: 20110524
  3. LEXAPRO [Concomitant]
     Indication: DEPRESSION
     Route: 048
  4. HERBAL PREPARATION [Concomitant]
     Indication: CARPAL TUNNEL SYNDROME
     Route: 048
     Dates: end: 20110521
  5. DOXYCYCLINE [Concomitant]
     Indication: CONJUNCTIVITIS
     Route: 048
     Dates: start: 20110515

REACTIONS (2)
  - DYSGEUSIA [None]
  - FOREIGN BODY SENSATION IN EYES [None]
